FAERS Safety Report 9624667 (Version 1)
Quarter: 2013Q4

REPORT INFORMATION
  Report Type: Spontaneous
  Country: KR (occurrence: KR)
  Receive Date: 20131015
  Receipt Date: 20131015
  Transmission Date: 20140711
  Serious: Yes (Hospitalization, Other)
  Sender: FDA-Public Use
  Company Number: PHHY2013KR112591

PATIENT
  Age: 68 Year
  Sex: Female

DRUGS (5)
  1. HYDROCHLOROTHIAZIDE [Suspect]
     Indication: HYPERTENSION
     Dosage: 12.5 MG, DAILY
  2. AMLODIPINE [Concomitant]
     Indication: HYPERTENSION
     Dosage: 5 MG, UNK
  3. TELMISARTAN [Concomitant]
     Indication: HYPERTENSION
     Dosage: 40 MG, UNK
  4. LEVOTHYROXINE [Concomitant]
     Dosage: 0.2 MG, DAILY
  5. LIOTHYRONINE [Concomitant]
     Dosage: 40 UG, DAILY

REACTIONS (18)
  - Papillary thyroid cancer [Unknown]
  - Metastases to lymph nodes [Unknown]
  - Hyponatraemia [Recovered/Resolved]
  - Vomiting [Recovered/Resolved]
  - Nausea [Recovered/Resolved]
  - Blood pressure increased [Unknown]
  - Heart rate increased [Unknown]
  - Altered state of consciousness [Unknown]
  - Disorientation [Unknown]
  - Hypothyroidism [Unknown]
  - Blood thyroid stimulating hormone increased [Unknown]
  - Thyroxine free decreased [Unknown]
  - Blood calcium decreased [Unknown]
  - Blood osmolarity decreased [Unknown]
  - Blood glucose increased [Unknown]
  - Blood cholesterol increased [Unknown]
  - Blood chloride decreased [Unknown]
  - Blood bilirubin increased [Unknown]
